FAERS Safety Report 17141321 (Version 8)
Quarter: 2022Q4

REPORT INFORMATION
  Report Type: Report from Study
  Country: ES (occurrence: ES)
  Receive Date: 20191211
  Receipt Date: 20221122
  Transmission Date: 20230112
  Serious: Yes (Hospitalization)
  Sender: FDA-Public Use
  Company Number: ES-SA-2019SA206290

PATIENT
  Age: 29 Year
  Sex: Female
  Weight: 47 kg

DRUGS (2)
  1. ALEMTUZUMAB [Suspect]
     Active Substance: ALEMTUZUMAB
     Indication: Relapsing multiple sclerosis
     Dosage: 12 MG, QD
     Route: 041
     Dates: start: 20181210, end: 20181212
  2. ALEMTUZUMAB [Suspect]
     Active Substance: ALEMTUZUMAB
     Dosage: 12 MG, QD
     Route: 041
     Dates: start: 20171211, end: 20171215

REACTIONS (6)
  - Autoimmune colitis [Not Recovered/Not Resolved]
  - Urinary tract infection [Recovered/Resolved]
  - Fibroadenoma of breast [Not Recovered/Not Resolved]
  - Urinary tract infection [Recovered/Resolved]
  - Urinary tract infection [Recovered/Resolved]
  - Pregnancy [Recovered/Resolved]

NARRATIVE: CASE EVENT DATE: 20190710
